FAERS Safety Report 13915334 (Version 1)
Quarter: 2017Q3

REPORT INFORMATION
  Report Type: Spontaneous
  Country: US (occurrence: None)
  Receive Date: 20170827
  Receipt Date: 20170827
  Transmission Date: 20171127
  Serious: No
  Sender: FDA-Public Use
  Company Number: None

PATIENT
  Age: 73 Year
  Sex: Female
  Weight: 85.73 kg

DRUGS (1)
  1. XGEVA [Suspect]
     Active Substance: DENOSUMAB
     Indication: BREAST CANCER
     Route: 058
     Dates: start: 20161018, end: 20170601

REACTIONS (3)
  - Osteomyelitis [None]
  - Infection [None]
  - Inflammation [None]

NARRATIVE: CASE EVENT DATE: 20170413
